FAERS Safety Report 14382471 (Version 1)
Quarter: 2018Q1

REPORT INFORMATION
  Report Type: Spontaneous
  Country: US (occurrence: US)
  Receive Date: 20180112
  Receipt Date: 20180112
  Transmission Date: 20180509
  Serious: No
  Sender: FDA-Public Use
  Company Number: US-MERZ NORTH AMERICA, INC.-18MRZ-00028

PATIENT
  Sex: Female

DRUGS (2)
  1. XEOMIN [Suspect]
     Active Substance: INCOBOTULINUMTOXINA
     Indication: SKIN COSMETIC PROCEDURE
     Dosage: UNK
     Route: 065
     Dates: start: 20180110, end: 20180110
  2. PRESERVATIVE FREE SALINE [Concomitant]
     Indication: SKIN COSMETIC PROCEDURE
     Dosage: 1.25ML MIXED WITH 50CC XEOMIN
     Dates: start: 20180110, end: 20180110

REACTIONS (1)
  - Injection site swelling [Not Recovered/Not Resolved]
